FAERS Safety Report 10108926 (Version 1)
Quarter: 2014Q2

REPORT INFORMATION
  Report Type: Spontaneous
  Country: US (occurrence: None)
  Receive Date: 20140423
  Receipt Date: 20140423
  Transmission Date: 20141212
  Serious: Yes (Death)
  Sender: FDA-Public Use
  Company Number: FK201401391

PATIENT
  Age: 40 Year
  Sex: Male

DRUGS (2)
  1. ETOPOSIDE [Suspect]
     Indication: ACTH-PRODUCING PITUITARY TUMOUR
     Dates: start: 201107
  2. CISPLATIN [Suspect]
     Indication: ACTH-PRODUCING PITUITARY TUMOUR
     Dates: start: 201107

REACTIONS (3)
  - Hypotension [None]
  - Convulsion [None]
  - Secondary adrenocortical insufficiency [None]
